FAERS Safety Report 6237502-1 (Version None)
Quarter: 2009Q2

REPORT INFORMATION
  Report Type: 
  Country: None (occurrence: None)
  Receive Date: 20090619
  Receipt Date: 20081116
  Transmission Date: 20091009
  Serious: No
  Sender: FDA-Public Use
  Company Number: US-AMGEN-KDL319258

PATIENT
  Sex: Male

DRUGS (4)
  1. ARANESP [Suspect]
     Indication: ANAEMIA
     Route: 058
  2. PROSCAR [Concomitant]
  3. FLOMAX [Concomitant]
  4. LEVOXYL [Concomitant]

REACTIONS (4)
  - HEART RATE INCREASED [None]
  - HYPERVENTILATION [None]
  - HYPOTENSION [None]
  - MALAISE [None]
